FAERS Safety Report 8995472 (Version 2)
Quarter: 2013Q1

REPORT INFORMATION
  Report Type: Report from Study
  Country: US (occurrence: US)
  Receive Date: 20130103
  Receipt Date: 20130219
  Transmission Date: 20140127
  Serious: Yes (Hospitalization)
  Sender: FDA-Public Use
  Company Number: US-TEVA-378389USA

PATIENT
  Age: 3 Year
  Sex: Male

DRUGS (25)
  1. MERCAPTOPURINE [Suspect]
     Indication: ACUTE LYMPHOCYTIC LEUKAEMIA
     Dosage: 60 MILLIGRAM/SQ METER 1 DAY
     Route: 048
     Dates: start: 20121029
  2. ARA-C [Suspect]
     Indication: ACUTE LYMPHOCYTIC LEUKAEMIA
     Dosage: 75 MILLIGRAM/ SQ METER 1 DAY
     Route: 042
     Dates: start: 20121031
  3. MTX [Suspect]
     Indication: ACUTE LYMPHOCYTIC LEUKAEMIA
     Dosage: 1 DAY
     Dates: start: 20121031
  4. DASATINIB [Suspect]
     Indication: ACUTE LYMPHOCYTIC LEUKAEMIA
     Dosage: 60 MI LLIGRAM/SQ METER 1 / 1 DAY
     Route: 048
     Dates: start: 20121029
  5. CYCLOPHOSPHAMIDE [Suspect]
     Indication: ACUTE LYMPHOCYTIC LEUKAEMIA
     Dosage: 1000 MILLIGRAM/SQ METER
     Route: 042
     Dates: start: 20121029
  6. MESNA [Suspect]
     Indication: ACUTE LYMPHOCYTIC LEUKAEMIA
  7. DEXAMETHASONE [Suspect]
     Indication: ACUTE LYMPHOCYTIC LEUKAEMIA
     Dosage: ONE DAY
  8. LEUCOVORIN [Suspect]
     Indication: ACUTE LYMPHOCYTIC LEUKAEMIA
     Dosage: 1 DAY
     Route: 042
  9. VINCRISTINE SULFATE [Suspect]
     Indication: ACUTE LYMPHOCYTIC LEUKAEMIA
     Dosage: 1 DAY
     Route: 042
  10. PEGASPARGASE [Suspect]
     Indication: ACUTE LYMPHOCYTIC LEUKAEMIA
     Route: 042
  11. HYDROCORTISONE [Suspect]
     Indication: ACUTE LYMPHOCYTIC LEUKAEMIA
     Dosage: 1 DAY
     Route: 037
  12. PERIDEX [Concomitant]
     Dates: start: 20120927
  13. ENULOSE [Concomitant]
     Dates: start: 20120927
  14. MIRALAX [Concomitant]
     Dates: start: 20120927
  15. SULFATRIM [Concomitant]
     Dates: start: 20121001
  16. ZOFRAN [Concomitant]
     Dates: start: 20121022
  17. HEPARIN [Concomitant]
     Dates: start: 20121018
  18. NORMAL SALINE [Concomitant]
     Dates: start: 20121029, end: 20121029
  19. NORMAL SALINE [Concomitant]
     Dates: start: 20121230, end: 20121230
  20. TYLENOL [Concomitant]
     Dates: start: 20121029, end: 20121029
  21. LIDOCAINE [Concomitant]
     Dates: start: 20121230, end: 20121230
  22. MAXIPIME [Concomitant]
     Dates: start: 20121230
  23. ROBITUSSIN [Concomitant]
     Dates: start: 20121231
  24. DEXTROSE 5% 1/2 NORMAL SALINE + KCL [Concomitant]
  25. MYCOSTATIN FOR SUSPENSION [Concomitant]
     Dosage: 100000 IU/ML
     Dates: start: 20121228

REACTIONS (1)
  - Febrile neutropenia [Unknown]
